FAERS Safety Report 4368872-7 (Version None)
Quarter: 2004Q2

REPORT INFORMATION
  Report Type: 
  Country: None (occurrence: None)
  Receive Date: 20040525
  Receipt Date: 20040510
  Transmission Date: 20050107
  Serious: Yes (Hospitalization, Other)
  Sender: FDA-Public Use
  Company Number: US-SHR-04-022951

PATIENT
  Age: 50 Year
  Sex: Female

DRUGS (11)
  1. BETASERON [Suspect]
     Indication: MULTIPLE SCLEROSIS
     Dosage: SEE IMAGE
     Route: 058
     Dates: start: 20030101, end: 20030101
  2. BETASERON [Suspect]
     Indication: MULTIPLE SCLEROSIS
     Dosage: SEE IMAGE
     Route: 058
     Dates: start: 20030901, end: 20030101
  3. BETASERON [Suspect]
     Indication: MULTIPLE SCLEROSIS
     Dosage: SEE IMAGE
     Route: 058
     Dates: start: 20030101
  4. MIRAPEX [Concomitant]
  5. PROVIGIL [Concomitant]
  6. TRILEPTAL ^NORVARTIS^ (OXCARBAZEPINE) [Concomitant]
  7. SINGULAIR ^MERCK^ (MONTELUKAST SODIUM) [Concomitant]
  8. ZYRTEC-D /USA/(PSEUDOEPHEDRINE HYDROCHLORIDE, CETIRIZINE HYDROCHLORIDE [Concomitant]
  9. ADVAIR (SALMETEROL XINAFOATE, FLUTICASONE PROPIONATE) [Concomitant]
  10. ESTRADIOL [Concomitant]
  11. NASAL SPRAY [Concomitant]

REACTIONS (4)
  - ABDOMINAL PAIN [None]
  - GALLBLADDER DISORDER [None]
  - MULTIPLE SCLEROSIS [None]
  - PERITONEAL HAEMORRHAGE [None]
